FAERS Safety Report 24306674 (Version 1)
Quarter: 2024Q3

REPORT INFORMATION
  Report Type: Spontaneous
  Country: VE (occurrence: VE)
  Receive Date: 20240911
  Receipt Date: 20240911
  Transmission Date: 20241016
  Serious: Yes (Death)
  Sender: PFIZER
  Company Number: VE-PFIZER INC-PV202400117104

PATIENT
  Age: 66 Year
  Sex: Female

DRUGS (1)
  1. BOSULIF [Suspect]
     Active Substance: BOSUTINIB MONOHYDRATE
     Indication: Chronic myeloid leukaemia
     Dosage: 500 MG

REACTIONS (2)
  - Myocardial infarction [Fatal]
  - Vomiting [Fatal]

NARRATIVE: CASE EVENT DATE: 20240717
